FAERS Safety Report 11121009 (Version 1)
Quarter: 2015Q2

REPORT INFORMATION
  Report Type: Spontaneous
  Country: US (occurrence: US)
  Receive Date: 20150519
  Receipt Date: 20150519
  Transmission Date: 20150821
  Serious: No
  Sender: FDA-Public Use
  Company Number: US-ASTRAZENECA-2015SE43544

PATIENT
  Sex: Female

DRUGS (3)
  1. GLYBURIDE. [Concomitant]
     Active Substance: GLYBURIDE
     Indication: DIABETES MELLITUS
  2. METFORMIN [Concomitant]
     Active Substance: METFORMIN HYDROCHLORIDE
     Indication: DIABETES MELLITUS
  3. BYDUREON [Suspect]
     Active Substance: EXENATIDE
     Indication: TYPE 2 DIABETES MELLITUS
     Dosage: 5 DOSES,TWO PENS AND 3 SINGLE DOSE TRAYS,2 MG ONCE WEEKLY
     Route: 065
     Dates: start: 201504

REACTIONS (3)
  - Nodule [Not Recovered/Not Resolved]
  - Off label use [Unknown]
  - Injection site pain [Unknown]
